FAERS Safety Report 21830661 (Version 1)
Quarter: 2023Q1

REPORT INFORMATION
  Report Type: Spontaneous
  Country: US (occurrence: None)
  Receive Date: 20230106
  Receipt Date: 20230106
  Transmission Date: 20230418
  Serious: No
  Sender: FDA-Public Use
  Company Number: None

PATIENT
  Age: 72 Year
  Sex: Female
  Weight: 106.14 kg

DRUGS (15)
  1. PIQRAY [Suspect]
     Active Substance: ALPELISIB
     Indication: Breast cancer female
     Dosage: FREQUENCY : DAILY;?
     Route: 048
  2. AMIODARONE [Concomitant]
     Active Substance: AMIODARONE
  3. CIPROFLOXACIN [Concomitant]
     Active Substance: CIPROFLOXACIN
  4. ELIQUIS [Concomitant]
     Active Substance: APIXABAN
  5. FARXIGA [Concomitant]
     Active Substance: DAPAGLIFLOZIN PROPANEDIOL
  6. GLIMEPIRIDE [Concomitant]
     Active Substance: GLIMEPIRIDE
  7. IBUPROFEN [Concomitant]
     Active Substance: IBUPROFEN
  8. LASIX [Concomitant]
     Active Substance: FUROSEMIDE
  9. LOMOTIL [Concomitant]
     Active Substance: ATROPINE SULFATE\DIPHENOXYLATE HYDROCHLORIDE
  10. METFORMIN [Concomitant]
     Active Substance: METFORMIN HYDROCHLORIDE
  11. PIOGLITAZONE [Concomitant]
     Active Substance: PIOGLITAZONE
  12. TRESIBA [Concomitant]
     Active Substance: INSULIN DEGLUDEC
  13. TRULICITY [Concomitant]
     Active Substance: DULAGLUTIDE
  14. VITAMIN C [Concomitant]
     Active Substance: ASCORBIC ACID
  15. ZOFRAN [Concomitant]
     Active Substance: ONDANSETRON HYDROCHLORIDE

REACTIONS (1)
  - Hyperglycaemia [None]
